FAERS Safety Report 8939850 (Version 1)
Quarter: 2012Q4

REPORT INFORMATION
  Report Type: Report from Study
  Country: BR (occurrence: BR)
  Receive Date: 20121130
  Receipt Date: 20121130
  Transmission Date: 20130627
  Serious: Yes (Death, Hospitalization, Other)
  Sender: FDA-Public Use
  Company Number: BR-ABBOTT-12P-020-1014655-00

PATIENT
  Sex: Male

DRUGS (1)
  1. HUMIRA [Suspect]
     Indication: CROHN^S DISEASE
     Route: 058
     Dates: end: 20121120

REACTIONS (7)
  - Cardio-respiratory arrest [Fatal]
  - Pneumonia [Fatal]
  - Sepsis [Fatal]
  - Anaemia [Fatal]
  - Disease complication [Unknown]
  - Gastrointestinal disorder [Unknown]
  - Lung disorder [Unknown]
